FAERS Safety Report 4631118-6 (Version None)
Quarter: 2005Q2

REPORT INFORMATION
  Report Type: 
  Country: None (occurrence: None)
  Receive Date: 20050406
  Receipt Date: 20050406
  Transmission Date: 20051028
  Serious: Yes (Hospitalization)
  Sender: FDA-Public Use
  Company Number: None

PATIENT
  Age: 82 Year
  Sex: Female
  Weight: 48 kg

DRUGS (19)
  1. IRESSA [Suspect]
     Indication: NON-SMALL CELL LUNG CANCER
     Dosage: 125 MG BID
     Dates: start: 20050202, end: 20050327
  2. FASLODEX [Suspect]
     Indication: NON-SMALL CELL LUNG CANCER
     Dosage: 250 MG Q MONTH
     Dates: start: 20050202, end: 20050321
  3. ASPIRIN [Concomitant]
  4. ACCUPRIL [Concomitant]
  5. RANITIDINE [Concomitant]
  6. PRAVACHOL [Concomitant]
  7. VERALEN [Concomitant]
  8. ATENOLOL [Concomitant]
  9. PREP-H [Concomitant]
  10. TYLENOL PM [Concomitant]
  11. NITROGLYCERIN [Concomitant]
  12. MTV (OTC) [Concomitant]
  13. STOOL SOFTENER [Concomitant]
  14. NICOTINE [Concomitant]
  15. VICODIN [Concomitant]
  16. HYDROCODONE BITARTRATE [Concomitant]
  17. ALBUTEROL [Concomitant]
  18. SPIRIVA [Concomitant]
  19. QVAR 40 [Concomitant]

REACTIONS (3)
  - DEHYDRATION [None]
  - LOWER GASTROINTESTINAL HAEMORRHAGE [None]
  - OXYGEN SATURATION DECREASED [None]
